FAERS Safety Report 8539761-9 (Version None)
Quarter: 2012Q3

REPORT INFORMATION
  Report Type: 
  Country: None (occurrence: None)
  Receive Date: 20120726
  Receipt Date: 20120720
  Transmission Date: 20120928
  Serious: Yes (Other)
  Sender: FDA-Public Use
  Company Number: FR-SANOFI-AVENTIS-2012SA039439

PATIENT
  Age: 49 Year
  Sex: Female

DRUGS (6)
  1. PREDNISOLONE [Concomitant]
     Route: 048
     Dates: start: 20120603
  2. AMITRIPTYLINE HYDROCHLORIDE [Concomitant]
     Dosage: IN EVENING
     Route: 048
  3. TRIDESONIT [Concomitant]
     Route: 061
  4. TAXOTERE [Suspect]
     Indication: BREAST OPERATION
     Route: 042
     Dates: start: 20120525
  5. TAXOTERE [Suspect]
     Route: 042
     Dates: start: 20120705
  6. PREDNISOLONE [Concomitant]
     Route: 048
     Dates: end: 20120602

REACTIONS (8)
  - ARTHRALGIA [None]
  - NEUROPATHY PERIPHERAL [None]
  - SKIN BURNING SENSATION [None]
  - PARAESTHESIA [None]
  - LIP OEDEMA [None]
  - ERYTHEMA [None]
  - ORAL CANDIDIASIS [None]
  - VISUAL IMPAIRMENT [None]
